FAERS Safety Report 20557985 (Version 2)
Quarter: 2022Q1

REPORT INFORMATION
  Report Type: Spontaneous
  Country: US (occurrence: US)
  Receive Date: 20220307
  Receipt Date: 20220316
  Transmission Date: 20220424
  Serious: No
  Sender: FDA-Public Use
  Company Number: US-LUPIN PHARMACEUTICALS INC.-2022-02695

PATIENT
  Sex: Female

DRUGS (1)
  1. ALBUTEROL SULFATE [Suspect]
     Active Substance: ALBUTEROL SULFATE
     Indication: Dyspnoea
     Dosage: UNK, PRN,  2 PUFFS Q 6 HOURS AS NEEDED

REACTIONS (2)
  - Oral discomfort [Unknown]
  - Product substitution issue [Unknown]
